FAERS Safety Report 10226699 (Version 2)
Quarter: 2014Q3

REPORT INFORMATION
  Report Type: Spontaneous
  Country: FR (occurrence: FR)
  Receive Date: 20140609
  Receipt Date: 20140728
  Transmission Date: 20150326
  Serious: Yes (Other)
  Sender: FDA-Public Use
  Company Number: FR-ROCHE-1414002

PATIENT
  Age: 62 Year
  Sex: Female

DRUGS (7)
  1. EXFORGE [Concomitant]
     Active Substance: AMLODIPINE BESYLATE\VALSARTAN
  2. CARBOPLATIN. [Concomitant]
     Active Substance: CARBOPLATIN
     Indication: OVARIAN CANCER
     Dosage: STOPPED AFTER 6 CYCLES
     Route: 065
     Dates: start: 201307, end: 201311
  3. LERCAN [Concomitant]
     Active Substance: LERCANIDIPINE
  4. TAXOL [Concomitant]
     Active Substance: PACLITAXEL
     Indication: OVARIAN CANCER
     Dosage: STOPPED AFTER 6 CYCLES
     Route: 065
     Dates: start: 201307, end: 201311
  5. AVASTIN [Suspect]
     Active Substance: BEVACIZUMAB
     Indication: OVARIAN CANCER
     Dosage: 18/FEB/2014: LAST CYCLE OF AVASTIN
     Route: 042
     Dates: start: 20130806
  6. LEVOTHYROX [Concomitant]
     Active Substance: LEVOTHYROXINE
  7. TRAMADOL [Concomitant]
     Active Substance: TRAMADOL

REACTIONS (1)
  - Visual acuity reduced [Not Recovered/Not Resolved]

NARRATIVE: CASE EVENT DATE: 201401
